FAERS Safety Report 11137416 (Version 3)
Quarter: 2015Q2

REPORT INFORMATION
  Report Type: Spontaneous
  Country: US (occurrence: US)
  Receive Date: 20150526
  Receipt Date: 20150630
  Transmission Date: 20150821
  Serious: No
  Sender: FDA-Public Use
  Company Number: US-PFIZER INC-2015172339

PATIENT
  Age: 51 Year
  Sex: Female

DRUGS (1)
  1. IBRANCE [Suspect]
     Active Substance: PALBOCICLIB
     Indication: BREAST CANCER
     Dosage: 125 MG, CYCLIC (DAILY FOR 3 WEEKS ON, 1 WEEK OFF)
     Route: 048
     Dates: start: 20150504, end: 20150625

REACTIONS (14)
  - Muscle spasms [Unknown]
  - Panic attack [Unknown]
  - Diarrhoea [Unknown]
  - Pain in extremity [Unknown]
  - Malaise [Unknown]
  - Pain of skin [Unknown]
  - Abdominal pain upper [Unknown]
  - Anxiety [Recovered/Resolved]
  - Pruritus [Unknown]
  - Depression [Recovered/Resolved]
  - Fatigue [Unknown]
  - Dizziness [Unknown]
  - White blood cell count decreased [Unknown]
  - Hyperhidrosis [Unknown]

NARRATIVE: CASE EVENT DATE: 20150518
